FAERS Safety Report 23821040 (Version 2)
Quarter: 2024Q2

REPORT INFORMATION
  Report Type: Spontaneous
  Country: FR (occurrence: FR)
  Receive Date: 20240506
  Receipt Date: 20240524
  Transmission Date: 20240716
  Serious: Yes (Life-Threatening, Hospitalization, Other)
  Sender: FDA-Public Use
  Company Number: None

PATIENT
  Age: 61 Year
  Sex: Male
  Weight: 87 kg

DRUGS (19)
  1. PREDNISOLONE SODIUM METAZOATE [Suspect]
     Active Substance: PREDNISOLONE SODIUM METAZOATE
     Indication: Joint swelling
     Dosage: 1 DF, QD
     Route: 048
     Dates: end: 20240217
  2. LANSOPRAZOLE [Suspect]
     Active Substance: LANSOPRAZOLE
     Indication: Prophylaxis against gastrointestinal ulcer
     Dosage: 15 MG, QD: 0-0-1
     Route: 048
     Dates: end: 20240217
  3. LANSOPRAZOLE [Suspect]
     Active Substance: LANSOPRAZOLE
     Dosage: 15 MILLIGRAM, QD
     Route: 048
     Dates: end: 20240217
  4. POTASSIUM CHLORIDE [Suspect]
     Active Substance: POTASSIUM CHLORIDE
     Dosage: UNK: 2-0-0
  5. POTASSIUM CHLORIDE [Suspect]
     Active Substance: POTASSIUM CHLORIDE
     Dosage: UNK
     Route: 048
  6. CISPLATIN [Suspect]
     Active Substance: CISPLATIN
     Indication: Oesophageal carcinoma
     Dosage: UNK
     Route: 042
     Dates: start: 202305
  7. CISPLATIN [Suspect]
     Active Substance: CISPLATIN
     Dosage: 160MG, EVERY 3 WEEKS
     Route: 042
     Dates: start: 20231106, end: 20240129
  8. PREDNISOLONE [Suspect]
     Active Substance: PREDNISOLONE
     Indication: Joint swelling
     Dosage: 1 DF, QD (1 DOSAGE FORM, QD )
     Route: 048
     Dates: start: 20240217
  9. PREDNISOLONE [Suspect]
     Active Substance: PREDNISOLONE
     Indication: Interstitial lung disease
     Dosage: 80 MG, QD
     Route: 048
     Dates: start: 20240223, end: 20240323
  10. PREDNISOLONE [Suspect]
     Active Substance: PREDNISOLONE
     Dosage: 70 MG, QD
     Route: 048
     Dates: start: 20240324
  11. DOCETAXEL [Suspect]
     Active Substance: DOCETAXEL\DOCETAXEL ANHYDROUS
     Dosage: UNK
     Route: 042
     Dates: start: 20240319, end: 20240319
  12. FLUOROURACIL [Suspect]
     Active Substance: FLUOROURACIL
     Indication: Oesophageal carcinoma
     Dosage: UNK
     Route: 042
     Dates: start: 202305
  13. FLUOROURACIL [Suspect]
     Active Substance: FLUOROURACIL
     Dosage: 8G, 3 WEEKS
     Route: 042
     Dates: start: 20231106, end: 20240203
  14. INNOHEP [Suspect]
     Active Substance: TINZAPARIN SODIUM
     Indication: Thrombosis prophylaxis
     Dosage: 1 DOSAGE FORM, QD; 18 000 I.U. ANTI-XA/0.9 ML, SOLUTION FOR INJECTION (S.C.) IN PRE-FILLED SYRINGE
     Route: 058
     Dates: start: 2020, end: 20240129
  15. PEMBROLIZUMAB [Suspect]
     Active Substance: PEMBROLIZUMAB
     Indication: Oesophageal carcinoma
     Dosage: UNK
     Route: 042
     Dates: start: 202305, end: 20240217
  16. PEMBROLIZUMAB [Suspect]
     Active Substance: PEMBROLIZUMAB
     Dosage: 200MG, EVERY 3 WEEKS
     Route: 042
     Dates: start: 20231106, end: 20240129
  17. BISOPROLOL FUMARATE [Concomitant]
     Active Substance: BISOPROLOL FUMARATE
     Dosage: 5MG, 1 D
     Route: 048
     Dates: start: 202402
  18. OXYCODONE HYDROCHLORIDE [Concomitant]
     Active Substance: OXYCODONE HYDROCHLORIDE
     Dosage: 1 DF
     Route: 048
     Dates: end: 20240323
  19. OXYCODONE HYDROCHLORIDE [Concomitant]
     Active Substance: OXYCODONE HYDROCHLORIDE
     Dosage: 1 DF (5MG), AS NECESSARY
     Route: 048
     Dates: end: 20240323

REACTIONS (6)
  - Interstitial lung disease [Not Recovered/Not Resolved]
  - Respiratory alkalosis [Unknown]
  - Behaviour disorder [Recovering/Resolving]
  - Encephalitis [Recovering/Resolving]
  - Behaviour disorder [Recovering/Resolving]
  - Condition aggravated [Recovering/Resolving]

NARRATIVE: CASE EVENT DATE: 20240217
